FAERS Safety Report 4300516-2 (Version None)
Quarter: 2004Q1

REPORT INFORMATION
  Report Type: 
  Country: None (occurrence: None)
  Receive Date: 20040220
  Receipt Date: 20040211
  Transmission Date: 20041129
  Serious: Yes (Other)
  Sender: FDA-Public Use
  Company Number: PHEH2004US01841

PATIENT
  Age: 41 Year
  Sex: Female

DRUGS (2)
  1. ZELNORM [Suspect]
     Indication: CONSTIPATION
     Dosage: 6 MG, BID
     Route: 048
     Dates: start: 20010101, end: 20031101
  2. OXYCONTIN [Concomitant]
     Dosage: 40 MG, Q12H

REACTIONS (3)
  - ABDOMINAL PAIN UPPER [None]
  - BRONCHITIS [None]
  - GALLBLADDER NON-FUNCTIONING [None]
